FAERS Safety Report 9050758 (Version 3)
Quarter: 2013Q2

REPORT INFORMATION
  Report Type: Report from Study
  Country: ES (occurrence: ES)
  Receive Date: 20130205
  Receipt Date: 20130618
  Transmission Date: 20140414
  Serious: Yes (Hospitalization)
  Sender: FDA-Public Use
  Company Number: ES-BIOGENIDEC-2013BI009086

PATIENT
  Age: 45 Year
  Sex: Female
  Weight: 60 kg

DRUGS (7)
  1. TYSABRI [Suspect]
     Indication: MULTIPLE SCLEROSIS
     Route: 042
     Dates: start: 20081125
  2. DIACEPAM [Concomitant]
     Indication: ANXIETY
     Dates: start: 2007
  3. ESCITALOPRAM [Concomitant]
     Indication: ANXIETY
     Dates: start: 2005
  4. CLONAZEPAM [Concomitant]
     Indication: ANXIETY
     Dates: start: 2009
  5. GABAPENTINE [Concomitant]
     Indication: DEPRESSION
     Dates: start: 2005
  6. VENLAFAXINE [Concomitant]
     Indication: DEPRESSION
     Dates: start: 2007
  7. FLUNARIZINE [Concomitant]
     Indication: MIGRAINE
     Dates: start: 20121023

REACTIONS (2)
  - Bacterial pyelonephritis [Recovered/Resolved]
  - Klebsiella infection [Recovered/Resolved]
